FAERS Safety Report 4507390-X (Version None)
Quarter: 2004Q4

REPORT INFORMATION
  Report Type: 
  Country: None (occurrence: None)
  Receive Date: 20041118
  Receipt Date: 20041105
  Transmission Date: 20050328
  Serious: Yes (Other)
  Sender: FDA-Public Use
  Company Number: 2004078107

PATIENT
  Age: 33 Year
  Sex: Female

DRUGS (2)
  1. ZOLOFT [Suspect]
     Indication: DEPRESSION
     Dosage: 50 MG, 1 IN 1 D, ORAL
     Route: 048
     Dates: start: 20040824
  2. METHYLERGOMETRINE MALEATE (METHYLERGOMETRINE MALEATE) [Suspect]
     Indication: ILL-DEFINED DISORDER
     Dosage: 0.8 MG (0.2 MG, 4 IN 1 D)
     Dates: start: 20040902, end: 20040904

REACTIONS (5)
  - ABORTION SPONTANEOUS [None]
  - DRUG EXPOSURE DURING PREGNANCY [None]
  - PARAESTHESIA [None]
  - SENSORY LOSS [None]
  - SWELLING FACE [None]
